FAERS Safety Report 19149264 (Version 5)
Quarter: 2021Q2

REPORT INFORMATION
  Report Type: Spontaneous
  Country: US (occurrence: US)
  Receive Date: 20210416
  Receipt Date: 20210513
  Transmission Date: 20210717
  Serious: Yes (Other)
  Sender: FDA-Public Use
  Company Number: US-ORGANON-2008USA004010

PATIENT
  Age: 19 Year
  Sex: Female

DRUGS (3)
  1. NEXPLANON [Suspect]
     Active Substance: ETONOGESTREL
     Indication: CONTRACEPTION
     Dosage: 1 ROD EVERY 3 YEARS (UNDERSIDE UPPER LEFT ARM)
     Route: 059
     Dates: start: 20200421
  2. SERTRALINE [Concomitant]
     Active Substance: SERTRALINE HYDROCHLORIDE
     Dosage: 100 MILLIGRAM, QD
  3. DEPO?PROVERA [Suspect]
     Active Substance: MEDROXYPROGESTERONE ACETATE
     Indication: CONTRACEPTION
     Dosage: UNK
     Dates: start: 202010

REACTIONS (10)
  - Abortion spontaneous [Unknown]
  - Implant site discharge [Unknown]
  - Complication associated with device [Unknown]
  - Implant site cellulitis [Unknown]
  - Implant site scar [Unknown]
  - Product prescribing issue [Unknown]
  - Unintended pregnancy [Recovered/Resolved]
  - Product use issue [Unknown]
  - Pregnancy with implant contraceptive [Recovered/Resolved]
  - Product dose omission issue [Unknown]

NARRATIVE: CASE EVENT DATE: 2020
